FAERS Safety Report 12770724 (Version 1)
Quarter: 2016Q3

REPORT INFORMATION
  Report Type: Spontaneous
  Country: US (occurrence: US)
  Receive Date: 20160921
  Receipt Date: 20160921
  Transmission Date: 20161109
  Serious: No
  Sender: FDA-Public Use
  Company Number: None

PATIENT
  Age: 2 Year
  Sex: Male
  Weight: 21.4 kg

DRUGS (2)
  1. LEVALBUTEROL. [Suspect]
     Active Substance: LEVALBUTEROL
     Indication: CYSTIC FIBROSIS
     Dosage: GENERIC LEVALBUTEROL NEBULIZED
  2. DORNASE ALPHA [Concomitant]

REACTIONS (5)
  - Glassy eyes [None]
  - Product substitution issue [None]
  - Mydriasis [None]
  - Cough [None]
  - Sleep terror [None]

NARRATIVE: CASE EVENT DATE: 20130101
